FAERS Safety Report 13472822 (Version 3)
Quarter: 2017Q2

REPORT INFORMATION
  Report Type: Spontaneous
  Country: JP (occurrence: JP)
  Receive Date: 20170424
  Receipt Date: 20170512
  Transmission Date: 20170830
  Serious: Yes (Other)
  Sender: FDA-Public Use
  Company Number: JP-PFIZER INC-2017172859

PATIENT
  Age: 61 Year
  Sex: Male

DRUGS (2)
  1. LYRICA [Suspect]
     Active Substance: PREGABALIN
     Indication: HYPOAESTHESIA
     Dosage: 75 MG, 2X/DAY
     Route: 048
     Dates: start: 20130319
  2. LYRICA [Suspect]
     Active Substance: PREGABALIN
     Indication: PAIN

REACTIONS (2)
  - Epistaxis [Unknown]
  - Haemorrhage subcutaneous [Unknown]

NARRATIVE: CASE EVENT DATE: 2016
